FAERS Safety Report 9252938 (Version 6)
Quarter: 2013Q2

REPORT INFORMATION
  Report Type: Spontaneous
  Country: JP (occurrence: JP)
  Receive Date: 20130424
  Receipt Date: 20130627
  Transmission Date: 20140414
  Serious: Yes (Death, Hospitalization, Other)
  Sender: FDA-Public Use
  Company Number: JP-B.I. PHARMACEUTICALS,INC./RIDGEFIELD-2013-BI-11270NB

PATIENT
  Age: 62 Year
  Sex: Female
  Weight: 32 kg

DRUGS (6)
  1. PRADAXA [Suspect]
     Indication: ATRIAL FIBRILLATION
     Dosage: 220 MG
     Route: 048
     Dates: start: 20120810, end: 20130418
  2. DIGOSIN [Concomitant]
     Dosage: 0.0625 MG
     Route: 048
     Dates: start: 20130329, end: 20130418
  3. LASIX [Concomitant]
     Dosage: 40 MG
     Route: 048
     Dates: start: 20130315, end: 20130418
  4. LACALMIN [Concomitant]
     Dosage: 25 MG
     Route: 048
     Dates: start: 20130107, end: 20130418
  5. ALFAROL [Concomitant]
     Dosage: 0.5 MG
     Route: 048
  6. PREDONINE [Concomitant]
     Dosage: 7.5 MG
     Route: 065

REACTIONS (10)
  - Upper gastrointestinal haemorrhage [Fatal]
  - Renal failure acute [Unknown]
  - Coagulopathy [Unknown]
  - Cardiac failure congestive [Unknown]
  - Gastric ulcer haemorrhage [Unknown]
  - Cardiac failure [Unknown]
  - Glomerulonephritis acute [Unknown]
  - Abdominal discomfort [Unknown]
  - Malaise [Unknown]
  - Hypophagia [Unknown]
